FAERS Safety Report 5697953-0 (Version None)
Quarter: 2008Q2

REPORT INFORMATION
  Report Type: 
  Country: None (occurrence: None)
  Receive Date: 20080408
  Receipt Date: 20080328
  Transmission Date: 20081010
  Serious: Yes (Other)
  Sender: FDA-Public Use
  Company Number: PH-JNJFOC-20080306863

PATIENT
  Sex: Female
  Weight: 60 kg

DRUGS (1)
  1. PALIPERIDONE [Suspect]
     Indication: SCHIZOPHRENIA
     Route: 048

REACTIONS (5)
  - DISTURBANCE IN ATTENTION [None]
  - DIZZINESS [None]
  - HEADACHE [None]
  - MALAISE [None]
  - NAUSEA [None]
